FAERS Safety Report 23511715 (Version 3)
Quarter: 2024Q1

REPORT INFORMATION
  Report Type: Other
  Country: US (occurrence: None)
  Receive Date: 20240212
  Receipt Date: 20240221
  Transmission Date: 20240410
  Serious: No
  Sender: FDA-Public Use
  Company Number: US-ROCHE-3508196

PATIENT
  Age: 62 Year
  Sex: Male
  Weight: 105.33 kg

DRUGS (1)
  1. OCREVUS [Suspect]
     Active Substance: OCRELIZUMAB
     Indication: Relapsing-remitting multiple sclerosis
     Dosage: ONGOING: NO?DATE OF TREATMENT: 05/MAY/2020
     Route: 042
     Dates: start: 2019, end: 202110

REACTIONS (8)
  - Memory impairment [Not Recovered/Not Resolved]
  - Fatigue [Not Recovered/Not Resolved]
  - Temperature intolerance [Unknown]
  - Muscular weakness [Unknown]
  - Asthenia [Unknown]
  - COVID-19 [Unknown]
  - Blood immunoglobulin M decreased [Not Recovered/Not Resolved]
  - Lipoatrophy [Unknown]

NARRATIVE: CASE EVENT DATE: 20231101
